FAERS Safety Report 10571589 (Version 3)
Quarter: 2015Q1

REPORT INFORMATION
  Report Type: Spontaneous
  Country: JP (occurrence: JP)
  Receive Date: 20141107
  Receipt Date: 20150203
  Transmission Date: 20150720
  Serious: Yes (Hospitalization)
  Sender: FDA-Public Use
  Company Number: JP-BAYER-2014-161238

PATIENT
  Sex: Male

DRUGS (3)
  1. SERMION [Concomitant]
     Active Substance: NICERGOLINE
     Dosage: UNK
     Route: 048
  2. ANPLAG [Concomitant]
     Active Substance: SARPOGRELATE
     Dosage: UNK
     Route: 048
  3. BAYASPIRIN [Suspect]
     Active Substance: ASPIRIN
     Dosage: UNK UNK, UNK
     Route: 048

REACTIONS (6)
  - Gastritis erosive [Recovered/Resolved]
  - Gastric ulcer [Recovered/Resolved]
  - Oesophageal ulcer [Recovered/Resolved]
  - Gastric mucosa erythema [Recovered/Resolved]
  - Erosive oesophagitis [Recovered/Resolved]
  - Ischaemic gastritis [Recovered/Resolved]
